FAERS Safety Report 5199442-9 (Version None)
Quarter: 2006Q4

REPORT INFORMATION
  Report Type: 
  Country: None (occurrence: None)
  Receive Date: 20061016
  Receipt Date: 20060712
  Transmission Date: 20070319
  Serious: No
  Sender: FDA-Public Use
  Company Number: 2006SP002677

PATIENT
  Age: 83 Year
  Sex: Female

DRUGS (6)
  1. LUNESTA [Suspect]
     Dosage: 3 MG;ORAL
     Route: 048
     Dates: start: 20060421
  2. SERUMLIPIDREDUCING AGENTS [Concomitant]
  3. ASPIRIN [Concomitant]
  4. METOPROLOL SUCCINATE [Concomitant]
  5. VALSARTAN [Concomitant]
  6. CALCIUM [Concomitant]

REACTIONS (1)
  - DRUG EFFECT DECREASED [None]
